FAERS Safety Report 16693537 (Version 1)
Quarter: 2019Q3

REPORT INFORMATION
  Report Type: Spontaneous
  Country: US (occurrence: US)
  Receive Date: 20190812
  Receipt Date: 20190812
  Transmission Date: 20191004
  Serious: No
  Sender: FDA-Public Use
  Company Number: US-ZYLA LIFE SCIENCES-US-2018EGA000897

PATIENT

DRUGS (1)
  1. OXAYDO [Suspect]
     Active Substance: OXYCODONE HYDROCHLORIDE
     Indication: PAIN
     Dosage: 5 MG, TWICE A DAY AS NEEDED
     Route: 048
     Dates: start: 2018, end: 20181022

REACTIONS (4)
  - Choking [Unknown]
  - Muscle spasms [Unknown]
  - Drug tolerance increased [Unknown]
  - Stent placement [Unknown]

NARRATIVE: CASE EVENT DATE: 20181019
